FAERS Safety Report 4482270-7 (Version None)
Quarter: 2004Q4

REPORT INFORMATION
  Report Type: 
  Country: None (occurrence: None)
  Receive Date: 20041020
  Receipt Date: 20040930
  Transmission Date: 20050328
  Serious: Yes (Other)
  Sender: FDA-Public Use
  Company Number: US_0410106325

PATIENT
  Age: 40 Year
  Sex: Female

DRUGS (2)
  1. CYMBALTA [Suspect]
     Indication: DEPRESSION
     Dosage: 60 MG DAY
  2. DEXEDRINE (DEXAMFETAMINE SULFATE) [Concomitant]

REACTIONS (2)
  - OROPHARYNGEAL SWELLING [None]
  - SWELLING FACE [None]
